FAERS Safety Report 8366439-7 (Version None)
Quarter: 2012Q2

REPORT INFORMATION
  Report Type: 
  Country: None (occurrence: None)
  Receive Date: 20120517
  Receipt Date: 20120512
  Transmission Date: 20120825
  Serious: Yes (Other)
  Sender: FDA-Public Use
  Company Number: US-BAYER-2011-070087

PATIENT
  Sex: Female
  Weight: 91 kg

DRUGS (3)
  1. YASMIN [Suspect]
     Dosage: UNK
     Dates: start: 20080801, end: 20090901
  2. DROSPIRENONE AND ETHINYL ESTRADIOL [Suspect]
     Dosage: UNK
     Dates: start: 20080801, end: 20090901
  3. YAZ [Suspect]
     Dosage: UNK
     Dates: start: 20080801, end: 20090901

REACTIONS (7)
  - DEEP VEIN THROMBOSIS [None]
  - ANXIETY [None]
  - HEADACHE [None]
  - EMOTIONAL DISTRESS [None]
  - PAIN [None]
  - PSYCHOLOGICAL TRAUMA [None]
  - FEAR [None]
